FAERS Safety Report 16678553 (Version 1)
Quarter: 2019Q3

REPORT INFORMATION
  Report Type: Spontaneous
  Country: JP (occurrence: JP)
  Receive Date: 20190807
  Receipt Date: 20190807
  Transmission Date: 20191004
  Serious: Yes (Hospitalization)
  Sender: FDA-Public Use
  Company Number: JP-MYLANLABS-2019M1073061

PATIENT
  Age: 16 Year
  Sex: Female
  Weight: 44.8 kg

DRUGS (6)
  1. LIDOCAINE. [Concomitant]
     Active Substance: LIDOCAINE
     Indication: NERVE COMPRESSION
     Route: 065
  2. PARACETAMOL/TRAMADOL [Suspect]
     Active Substance: ACETAMINOPHEN\TRAMADOL
     Indication: NERVE COMPRESSION
     Route: 065
  3. LOXOPROFEN [Suspect]
     Active Substance: LOXOPROFEN
     Indication: NERVE COMPRESSION
     Route: 065
  4. PARACETAMOL [Suspect]
     Active Substance: ACETAMINOPHEN
     Indication: NERVE COMPRESSION
     Route: 065
  5. PREGABALIN. [Suspect]
     Active Substance: PREGABALIN
     Indication: NERVE COMPRESSION
     Route: 065
  6. CELECOXIB. [Suspect]
     Active Substance: CELECOXIB
     Indication: NERVE COMPRESSION
     Route: 065

REACTIONS (1)
  - Drug ineffective [Unknown]
